FAERS Safety Report 6745025-6 (Version None)
Quarter: 2010Q2

REPORT INFORMATION
  Report Type: 
  Country: None (occurrence: None)
  Receive Date: 20100527
  Receipt Date: 20100517
  Transmission Date: 20101027
  Serious: Yes (Life-Threatening, Hospitalization, Other)
  Sender: FDA-Public Use
  Company Number: JP-ABBOTT-09P-087-0605488-00

PATIENT
  Sex: Female
  Weight: 40 kg

DRUGS (11)
  1. SEVOFLURANE [Suspect]
     Indication: GENERAL ANAESTHESIA
     Dosage: 4.0-1.0 PERCENT
     Route: 055
     Dates: start: 20080710, end: 20080710
  2. ALDOMET [Suspect]
     Indication: HYPERTENSION
     Route: 048
     Dates: start: 20080605
  3. SLOW-K [Suspect]
     Indication: HYPOKALAEMIA
     Route: 048
     Dates: start: 20080626
  4. INSULIN ASPART [Suspect]
     Indication: HYPERGLYCAEMIA
     Route: 058
     Dates: start: 20080621
  5. INSULIN ASPART [Suspect]
     Indication: DIABETES MELLITUS
     Route: 058
     Dates: start: 20080626
  6. ULTIVA [Suspect]
     Indication: GENERAL ANAESTHESIA
     Route: 042
  7. THIOPENTAL SODIUM [Concomitant]
     Indication: ANAESTHESIA
     Route: 042
     Dates: start: 20080710, end: 20080710
  8. MUSCURATE [Concomitant]
     Indication: HYPOTONIA
     Dates: start: 20080710, end: 20080710
  9. ROPIVACAINE HYDROCHLORIDE [Concomitant]
     Indication: DRUG USE FOR UNKNOWN INDICATION
     Dates: start: 20080710, end: 20080710
  10. THORACIC EPIDURAL ANESTHESIA [Concomitant]
     Indication: DRUG USE FOR UNKNOWN INDICATION
     Route: 008
  11. PRECEDEX [Concomitant]
     Indication: SEDATION

REACTIONS (1)
  - PULMONARY OEDEMA [None]
